FAERS Safety Report 7884833-5 (Version None)
Quarter: 2011Q4

REPORT INFORMATION
  Report Type: 
  Country: None (occurrence: None)
  Receive Date: 20111102
  Receipt Date: 20111024
  Transmission Date: 20120403
  Serious: Yes (Disabling, Other)
  Sender: FDA-Public Use
  Company Number: PHHY2011MX95112

PATIENT
  Sex: Female

DRUGS (3)
  1. LEVOTHYROXINE SODIUM [Concomitant]
     Indication: HYPOTHYROIDISM
     Dosage: .75 DF, QD
  2. EXFORGE HCT [Suspect]
     Indication: HYPERTENSION
     Dosage: 1 DF, QD
     Dates: start: 20110201
  3. SINTROM [Concomitant]
     Indication: THROMBOSIS
     Dosage: 1 DF, QD

REACTIONS (3)
  - JOINT DISLOCATION [None]
  - JOINT SWELLING [None]
  - ARTHRALGIA [None]
